FAERS Safety Report 11538991 (Version 1)
Quarter: 2015Q3

REPORT INFORMATION
  Report Type: Spontaneous
  Country: US (occurrence: None)
  Receive Date: 20150922
  Receipt Date: 20150922
  Transmission Date: 20151125
  Serious: Yes (Life-Threatening, Hospitalization)
  Sender: FDA-Public Use
  Company Number: None

PATIENT
  Age: 17 Year
  Sex: Female
  Weight: 58.97 kg

DRUGS (8)
  1. ABILIFY [Concomitant]
     Active Substance: ARIPIPRAZOLE
  2. LYRICA [Suspect]
     Active Substance: PREGABALIN
     Indication: FIBROMYALGIA
     Dosage: TAKEN BY MOUTH
     Dates: start: 20141101, end: 20141118
  3. LYRICA [Concomitant]
     Active Substance: PREGABALIN
  4. WELLBUTRIN [Concomitant]
     Active Substance: BUPROPION HYDROCHLORIDE
  5. PROZAC [Concomitant]
     Active Substance: FLUOXETINE HYDROCHLORIDE
  6. ORTHO TRICYCLES-LO [Concomitant]
  7. TOPIRAMATE. [Concomitant]
     Active Substance: TOPIRAMATE
  8. CLARITIN [Concomitant]
     Active Substance: LORATADINE

REACTIONS (11)
  - Suicide attempt [None]
  - Anxiety [None]
  - Agitation [None]
  - Depression [None]
  - Self injurious behaviour [None]
  - Vomiting [None]
  - Migraine [None]
  - Pain in extremity [None]
  - Affective disorder [None]
  - Intentional self-injury [None]
  - Abdominal pain upper [None]

NARRATIVE: CASE EVENT DATE: 20141203
